FAERS Safety Report 6539839-5 (Version None)
Quarter: 2010Q1

REPORT INFORMATION
  Report Type: 
  Country: None (occurrence: None)
  Receive Date: 20100115
  Receipt Date: 20090415
  Transmission Date: 20100710
  Serious: Yes (Hospitalization)
  Sender: FDA-Public Use
  Company Number: TW-PFIZER INC-2009200187

PATIENT
  Age: 73 Year
  Sex: Male
  Weight: 62 kg

DRUGS (14)
  1. BLINDED *NO SUBJECT DRUG [Suspect]
     Indication: PROSTATE CANCER
     Dosage: 37.5 MG, 1X/DAY
     Route: 048
     Dates: start: 20090219, end: 20090413
  2. BLINDED *PLACEBO [Suspect]
     Indication: PROSTATE CANCER
     Dosage: 37.5 MG, 1X/DAY
     Route: 048
     Dates: start: 20090219, end: 20090413
  3. BLINDED SUNITINIB MALATE [Suspect]
     Indication: PROSTATE CANCER
     Dosage: 37.5 MG, 1X/DAY
     Route: 048
     Dates: start: 20090219, end: 20090413
  4. PREDNISOLONE AND PREDNISOLONE STEAGLATE [Suspect]
     Indication: PROSTATE CANCER
     Dosage: 5 MG, 2X/DAY
     Route: 048
     Dates: start: 20090219, end: 20090413
  5. ACETYLSALICYLIC ACID [Concomitant]
     Indication: PROPHYLAXIS
     Dates: start: 20051104, end: 20090319
  6. STILBOESTROL [Concomitant]
     Indication: PROSTATE CANCER
     Dosage: UNK
     Dates: start: 20051104
  7. BICALUTAMIDE [Concomitant]
     Indication: PROSTATE CANCER
     Dates: start: 20070510, end: 20090319
  8. CLODRONATE DISODIUM [Concomitant]
     Indication: METASTASES TO BONE
     Dates: start: 20080508, end: 20090319
  9. CALCITRIOL [Concomitant]
     Indication: METASTASES TO BONE
     Dates: start: 20080508, end: 20090319
  10. AMLODIPINE [Concomitant]
     Indication: HYPERTENSION
     Dosage: UNK
     Dates: start: 20090115
  11. BROMHEXINE [Concomitant]
     Indication: UPPER RESPIRATORY TRACT INFECTION
     Dosage: UNK
     Dates: start: 20090305
  12. ULTRACET [Concomitant]
     Indication: BONE PAIN
     Dosage: UNK
     Dates: start: 20090319
  13. METOCLOPRAMIDE [Concomitant]
     Indication: ABDOMINAL PAIN UPPER
     Dosage: UNK
     Dates: start: 20090319
  14. TOPAAL [Concomitant]
     Indication: ABDOMINAL PAIN UPPER
     Dosage: UNK
     Dates: start: 20090319

REACTIONS (2)
  - GASTRIC ULCER [None]
  - NEUTROPENIA [None]
